FAERS Safety Report 11283307 (Version 6)
Quarter: 2016Q2

REPORT INFORMATION
  Report Type: Report from Study
  Country: CN (occurrence: CN)
  Receive Date: 20150720
  Receipt Date: 20160513
  Transmission Date: 20160815
  Serious: Yes (Hospitalization)
  Sender: FDA-Public Use
  Company Number: CN-GLAXOSMITHKLINE-CN2015098656

PATIENT
  Age: 70 Year
  Sex: Male
  Weight: 80.1 kg

DRUGS (5)
  1. TOLTERODINE TARTRATE SUSTAINED RELEASE TABLETS [Concomitant]
     Active Substance: TOLTERODINE TARTRATE
     Indication: TRANSURETHRAL PROSTATECTOMY
     Route: 048
     Dates: start: 20150710, end: 20150712
  2. CEFUROXIME AXETIL TABLETS [Concomitant]
     Indication: TRANSURETHRAL PROSTATECTOMY
     Dosage: 0.25 G, BID
     Route: 048
     Dates: start: 20150712, end: 20150713
  3. INSULIN [Concomitant]
     Active Substance: INSULIN NOS
     Indication: TRANSURETHRAL PROSTATECTOMY
     Dosage: 10 UNK, SINGLE
     Route: 058
     Dates: start: 20150709, end: 20150709
  4. CEFOXITIN SODIUM [Concomitant]
     Active Substance: CEFOXITIN SODIUM
     Indication: TRANSURETHRAL PROSTATECTOMY
     Dosage: 2 G, BID
     Route: 042
     Dates: start: 20150709, end: 20150710
  5. DUTASTERIDE + TAMSULOSIN [Suspect]
     Active Substance: DUTASTERIDE\TAMSULOSIN HYDROCHLORIDE
     Indication: BENIGN PROSTATIC HYPERPLASIA
     Dosage: UNK UNK, QD
     Dates: start: 20140822

REACTIONS (1)
  - Bladder outlet obstruction [Recovered/Resolved]

NARRATIVE: CASE EVENT DATE: 20150629
